FAERS Safety Report 19738438 (Version 1)
Quarter: 2021Q3

REPORT INFORMATION
  Report Type: Spontaneous
  Country: US (occurrence: US)
  Receive Date: 20210823
  Receipt Date: 20210823
  Transmission Date: 20211014
  Serious: Yes (Death)
  Sender: FDA-Public Use
  Company Number: None

PATIENT
  Age: 43 Year
  Sex: Male
  Weight: 78.6 kg

DRUGS (7)
  1. AZITHROMYCIN ANHYDROUS. [Concomitant]
     Active Substance: AZITHROMYCIN ANHYDROUS
     Dates: start: 20210821, end: 20210821
  2. DEXAMETHSONE [Concomitant]
     Dates: start: 20210821, end: 20210823
  3. BARICITINIB. [Suspect]
     Active Substance: BARICITINIB
     Indication: COVID-19
     Route: 048
     Dates: start: 20210822, end: 20210823
  4. REMDESIVIR. [Concomitant]
     Active Substance: REMDESIVIR
     Dates: start: 20210821, end: 20210823
  5. CEFTRIAXONE. [Concomitant]
     Active Substance: CEFTRIAXONE
     Dates: start: 20210821, end: 20210823
  6. DOXYCYCLINE. [Concomitant]
     Active Substance: DOXYCYCLINE
     Dates: start: 20210822, end: 20210823
  7. ENOXAPARIN [Concomitant]
     Active Substance: ENOXAPARIN
     Dates: start: 20210822, end: 20210823

REACTIONS (9)
  - Acute myocardial infarction [None]
  - Cardiac arrest [None]
  - Anxiety [None]
  - Atrioventricular block complete [None]
  - Pulseless electrical activity [None]
  - Chest pain [None]
  - Bundle branch block right [None]
  - Arteriovenous fistula [None]
  - Hypotension [None]

NARRATIVE: CASE EVENT DATE: 20210823
